FAERS Safety Report 6985591-9 (Version None)
Quarter: 2010Q3

REPORT INFORMATION
  Report Type: 
  Country: None (occurrence: None)
  Receive Date: 20100915
  Receipt Date: 20100615
  Transmission Date: 20110219
  Serious: No
  Sender: FDA-Public Use
  Company Number: A0865204A

PATIENT
  Age: 50 Year
  Sex: Male

DRUGS (1)
  1. NICORETTE MINIS MINT [Suspect]
     Dates: start: 20100612, end: 20100612

REACTIONS (1)
  - VOMITING [None]
